FAERS Safety Report 9038876 (Version 1)
Quarter: 2013Q1

REPORT INFORMATION
  Report Type: Report from Study
  Country: US (occurrence: US)
  Receive Date: 20130129
  Receipt Date: 20130129
  Transmission Date: 20140127
  Serious: No
  Sender: FDA-Public Use
  Company Number: US-ABBOTT-12P-163-0931361-00

PATIENT
  Age: 50 Year
  Sex: Female
  Weight: 61.74 kg

DRUGS (12)
  1. HUMIRA 40 MG/0.8 ML PEN [Suspect]
     Indication: RHEUMATOID ARTHRITIS
     Route: 058
     Dates: start: 201112, end: 20120408
  2. SYNTHROID [Concomitant]
     Indication: HYPOTHYROIDISM
  3. ALPRAZOLAM [Concomitant]
     Indication: INSOMNIA
     Dosage: AT BEDTIME
  4. ALPRAZOLAM [Concomitant]
     Indication: ANXIETY
  5. EFFEXOR XR [Concomitant]
     Indication: DEPRESSION
  6. IMITREX [Concomitant]
     Indication: MIGRAINE
  7. TRAMADOL [Concomitant]
     Indication: RHEUMATOID ARTHRITIS
  8. CLONIDINE [Concomitant]
     Indication: HOT FLUSH
  9. PRAVACHOL [Concomitant]
     Indication: BLOOD CHOLESTEROL INCREASED
     Dosage: AT BEDTIME
  10. ZANTAC [Concomitant]
     Indication: PRODUCT USED FOR UNKNOWN INDICATION
     Dosage: AT BEDTIME
  11. COLACE [Concomitant]
     Indication: PRODUCT USED FOR UNKNOWN INDICATION
     Dosage: AT BEDTIME
  12. FEXOFENADINE [Concomitant]
     Indication: HYPERSENSITIVITY

REACTIONS (4)
  - Rash generalised [Not Recovered/Not Resolved]
  - Pain [Not Recovered/Not Resolved]
  - Rash [Not Recovered/Not Resolved]
  - Rash erythematous [Not Recovered/Not Resolved]
